FAERS Safety Report 6855054-X (Version None)
Quarter: 2010Q3

REPORT INFORMATION
  Report Type: 
  Country: None (occurrence: None)
  Receive Date: 20100717
  Receipt Date: 20081125
  Transmission Date: 20110219
  Serious: Yes (Other)
  Sender: FDA-Public Use
  Company Number: US-PFIZER INC-2008002029

PATIENT
  Age: 51 Year
  Sex: Male

DRUGS (14)
  1. CHANTIX [Suspect]
     Route: 048
  2. AMBIEN [Suspect]
     Indication: INSOMNIA
     Route: 048
  3. VITAMINS [Concomitant]
     Route: 048
  4. DIGITEK [Concomitant]
     Route: 048
  5. WELLBUTRIN [Concomitant]
     Route: 048
  6. TRICOR [Concomitant]
     Route: 048
  7. NIASPAN [Concomitant]
     Route: 048
  8. METFORMIN HCL [Concomitant]
     Route: 048
  9. WARFARIN SODIUM [Concomitant]
     Route: 048
  10. LIPITOR [Concomitant]
     Route: 048
  11. LISINOPRIL [Concomitant]
     Route: 048
  12. ACTOS [Concomitant]
     Route: 048
  13. COREG [Concomitant]
     Route: 048
  14. BENADRYL [Concomitant]
     Route: 048

REACTIONS (2)
  - DIABETES MELLITUS [None]
  - DRUG INEFFECTIVE [None]
